FAERS Safety Report 23564925 (Version 5)
Quarter: 2024Q1

REPORT INFORMATION
  Report Type: Spontaneous
  Country: US (occurrence: US)
  Receive Date: 20240226
  Receipt Date: 20240326
  Transmission Date: 20240410
  Serious: No
  Sender: FDA-Public Use
  Company Number: US-PFIZER INC-202400035939

PATIENT
  Age: 12 Year
  Sex: Male
  Weight: 33.11 kg

DRUGS (2)
  1. GENOTROPIN [Suspect]
     Active Substance: SOMATROPIN
     Indication: Growth hormone deficiency
     Dosage: UNK
  2. GENOTROPIN [Suspect]
     Active Substance: SOMATROPIN
     Dosage: 1.1 MG, DAILY

REACTIONS (6)
  - Wrong technique in device usage process [Unknown]
  - Drug dose omission by device [Unknown]
  - Product packaging quantity issue [Unknown]
  - Product prescribing error [Unknown]
  - Device leakage [Unknown]
  - Device breakage [Unknown]
